FAERS Safety Report 22594704 (Version 4)
Quarter: 2024Q3

REPORT INFORMATION
  Report Type: Report from Study
  Country: AT (occurrence: AT)
  Receive Date: 20230613
  Receipt Date: 20240709
  Transmission Date: 20241016
  Serious: No
  Sender: PUMA
  Company Number: AT-PFM-2023-03215

PATIENT

DRUGS (4)
  1. NERATINIB [Suspect]
     Active Substance: NERATINIB
     Indication: Breast cancer
     Dosage: 240 MG/DAY
     Route: 048
     Dates: start: 20220211, end: 20230210
  2. LOPERAMIDE HYDROCHLORIDE [Concomitant]
     Active Substance: LOPERAMIDE HYDROCHLORIDE
     Indication: Prophylaxis against diarrhoea
     Dosage: 4 MG, TID (3/DAY)
     Route: 048
     Dates: start: 20220210, end: 20220217
  3. ESOMEPRAZOLE [Concomitant]
     Active Substance: ESOMEPRAZOLE
     Indication: Prophylaxis
     Dosage: 40 MG, QD (1/DAY)
     Route: 048
     Dates: start: 20220210
  4. LETROZOLE [Concomitant]
     Active Substance: LETROZOLE
     Indication: Breast cancer
     Dosage: UNK
     Route: 065
     Dates: start: 20200825

REACTIONS (1)
  - Hepatotoxicity [Recovering/Resolving]

NARRATIVE: CASE EVENT DATE: 20221103
